FAERS Safety Report 10402987 (Version 1)
Quarter: 2014Q3

REPORT INFORMATION
  Report Type: Spontaneous
  Country: US (occurrence: None)
  Receive Date: 20140820
  Receipt Date: 20140820
  Transmission Date: 20150326
  Serious: No
  Sender: FDA-Public Use
  Company Number: VER-2014-00003

PATIENT
  Sex: Female

DRUGS (1)
  1. CYCLOSET [Suspect]
     Active Substance: BROMOCRIPTINE MESYLATE
     Indication: DIABETES MELLITUS
     Route: 048

REACTIONS (3)
  - Feeling abnormal [None]
  - Hypotension [None]
  - Fatigue [None]

NARRATIVE: CASE EVENT DATE: 20140804
